FAERS Safety Report 18318508 (Version 2)
Quarter: 2020Q4

REPORT INFORMATION
  Report Type: Spontaneous
  Country: US (occurrence: US)
  Receive Date: 20200928
  Receipt Date: 20201106
  Transmission Date: 20210113
  Serious: No
  Sender: FDA-Public Use
  Company Number: US-SA-2020SA263252

PATIENT

DRUGS (2)
  1. DUPIXENT [Suspect]
     Active Substance: DUPILUMAB
     Indication: ASTHMA
     Dosage: 300 MG, QOW
     Route: 058
     Dates: start: 20200905
  2. DUPIXENT [Suspect]
     Active Substance: DUPILUMAB
     Indication: NASAL POLYPS

REACTIONS (5)
  - Device difficult to use [Unknown]
  - Injection site pain [Unknown]
  - Injection site mass [Unknown]
  - Product use issue [Unknown]
  - Injection site warmth [Unknown]

NARRATIVE: CASE EVENT DATE: 202009
